FAERS Safety Report 25668584 (Version 3)
Quarter: 2025Q4

REPORT INFORMATION
  Report Type: Spontaneous
  Country: JP (occurrence: JP)
  Receive Date: 20250812
  Receipt Date: 20251105
  Transmission Date: 20260118
  Serious: Yes (Other)
  Sender: NOVARTIS
  Company Number: JP-002147023-NVSJ2025JP008176

PATIENT
  Age: 61 Year

DRUGS (1)
  1. BEOVU [Suspect]
     Active Substance: BROLUCIZUMAB-DBLL
     Indication: Diabetic retinal oedema
     Dosage: 6 MG
     Route: 031
     Dates: start: 20250709, end: 20250709

REACTIONS (4)
  - Keratic precipitates [Recovered/Resolved]
  - Visual acuity reduced [Recovered/Resolved]
  - Vitreous opacities [Recovered/Resolved]
  - Eye inflammation [Recovered/Resolved]

NARRATIVE: CASE EVENT DATE: 20250802
